FAERS Safety Report 19877486 (Version 1)
Quarter: 2021Q3

REPORT INFORMATION
  Report Type: Spontaneous
  Country: US (occurrence: US)
  Receive Date: 20210924
  Receipt Date: 20210924
  Transmission Date: 20211014
  Serious: Yes (Hospitalization)
  Sender: FDA-Public Use
  Company Number: US-TEVA-2021-US-1955242

PATIENT
  Age: 59 Year
  Sex: Female
  Weight: 109.8 kg

DRUGS (9)
  1. PROTONIX [Concomitant]
     Active Substance: PANTOPRAZOLE SODIUM
     Dosage: 40 MG BEFORE BREAKFAST
  2. CLOZAPINE TEVA [Suspect]
     Active Substance: CLOZAPINE
     Dosage: 200 MG AT BEDTIME
     Route: 065
  3. MELATONIN [Concomitant]
     Active Substance: MELATONIN
     Dosage: 6 MG AT BEDTIME
  4. TRAZODONE [Concomitant]
     Active Substance: TRAZODONE HYDROCHLORIDE
     Dosage: 50 MILLIGRAM DAILY; BEDTIME
  5. CLOZAPINE TEVA [Suspect]
     Active Substance: CLOZAPINE
     Indication: SCHIZOAFFECTIVE DISORDER DEPRESSIVE TYPE
     Dosage: 3 TABLETS OF 50 MG
     Route: 065
  6. INVEGA [Concomitant]
     Active Substance: PALIPERIDONE
     Dosage: 9 MILLIGRAM DAILY; 9 MG DAILY EARLY IN THE MORNING
  7. DOXEPIN [Concomitant]
     Active Substance: DOXEPIN
     Dosage: 10 MG AT BEDTIME
  8. SYNTHROID [Concomitant]
     Active Substance: LEVOTHYROXINE SODIUM
     Dosage: 75 MICROGRAM DAILY;
  9. LOVENOX [Concomitant]
     Active Substance: ENOXAPARIN SODIUM
     Dosage: 40 MG SUBCUTANEOUSLY EVERY 24 HOURS
     Route: 058

REACTIONS (5)
  - Hypophagia [Unknown]
  - Hyponatraemia [Not Recovered/Not Resolved]
  - Dizziness [Unknown]
  - Tremor [Unknown]
  - Fall [Unknown]

NARRATIVE: CASE EVENT DATE: 2021
